FAERS Safety Report 10838829 (Version 1)
Quarter: 2015Q1

REPORT INFORMATION
  Report Type: Spontaneous
  Country: GB (occurrence: None)
  Receive Date: 20150218
  Receipt Date: 20150218
  Transmission Date: 20150721
  Serious: Yes (Disabling)
  Sender: FDA-Public Use
  Company Number: FK201500674

PATIENT
  Age: 74 Year
  Sex: Male
  Weight: 85.6 kg

DRUGS (12)
  1. FUROSEMIDE. [Suspect]
     Active Substance: FUROSEMIDE
     Indication: OEDEMA
     Route: 048
     Dates: start: 20140128, end: 20150129
  2. SENNA [Concomitant]
     Active Substance: SENNA LEAF\SENNOSIDES\SENNOSIDES A AND B
  3. THIAMINE (THIAMINE) [Concomitant]
     Active Substance: THIAMINE
  4. WHITE SOFT PARAFFIN (WHITE SOFT PARAFFIN) [Concomitant]
  5. PARACETAMOL (PARACETAMOL) [Concomitant]
     Active Substance: ACETAMINOPHEN
  6. RISPERIDONE (RISPERIDONE) [Concomitant]
     Active Substance: RISPERIDONE
  7. VITAMIN B COMPLEX STRONG (B-KOMPLEX) [Concomitant]
  8. ATORVASTATIN (ATORVASTATIN) [Concomitant]
     Active Substance: ATORVASTATIN
  9. SODIUM CHLORIDE SOLUTION 9% (SODIUM CHLORIDE) [Concomitant]
  10. CONOTRANE (CONOTRANE /00604301/) [Concomitant]
  11. NICOTINE (NICOTINE) [Concomitant]
     Active Substance: NICOTINE
  12. FERROUS SULFATE [Concomitant]
     Active Substance: FERROUS SULFATE\FERROUS SULFATE, DRIED

REACTIONS (3)
  - Wheezing [None]
  - Oxygen saturation decreased [None]
  - Swelling face [None]

NARRATIVE: CASE EVENT DATE: 20150129
